FAERS Safety Report 12985830 (Version 10)
Quarter: 2017Q4

REPORT INFORMATION
  Report Type: Report from Study
  Country: FR (occurrence: FR)
  Receive Date: 20161130
  Receipt Date: 20171114
  Transmission Date: 20180320
  Serious: Yes (Death, Hospitalization, Disabling, Other)
  Sender: FDA-Public Use
  Company Number: FR-INCYTE CORPORATION-2016IN007568

PATIENT
  Age: 74 Year
  Sex: Female

DRUGS (9)
  1. SOLUPRED [Concomitant]
     Active Substance: PREDNISOLONE
     Indication: CHEMOTHERAPY
     Dosage: 40 MG, (1DF DAILY DURING 6 DAYS EVERY 3 WEEKS)
     Route: 065
     Dates: start: 20170226, end: 20170616
  2. LOVENOX [Concomitant]
     Active Substance: ENOXAPARIN SODIUM
     Indication: THROMBOSIS PROPHYLAXIS
     Route: 065
     Dates: start: 20160923, end: 20161002
  3. AERIUS [Concomitant]
     Active Substance: DESLORATADINE
     Indication: CHEMOTHERAPY
     Dosage: 1 DF, QW3 (EVERY 3 WEEKS)
     Route: 065
     Dates: start: 20170226, end: 20170612
  4. JAKAVI [Suspect]
     Active Substance: RUXOLITINIB
     Indication: MYELOFIBROSIS
     Dosage: 10 MG, BID
     Route: 048
     Dates: start: 20120418
  5. KARDEGIC [Concomitant]
     Active Substance: ASPIRIN DL-LYSINE
     Indication: PRODUCT USED FOR UNKNOWN INDICATION
  6. GRANOCYTE [Concomitant]
     Active Substance: LENOGRASTIM
     Indication: PROPHYLAXIS
     Dosage: 34 OT, (1DF DURING 5 DAYS EVERY 3 WEEKS)
     Route: 065
     Dates: start: 20170301, end: 20170619
  7. PRIMPERAN [Concomitant]
     Active Substance: METOCLOPRAMIDE HYDROCHLORIDE
     Indication: NAUSEA
     Dosage: UNK UNK, TID
     Route: 065
     Dates: start: 20170227, end: 20170619
  8. KARDEGIC [Concomitant]
     Active Substance: ASPIRIN DL-LYSINE
     Indication: THROMBOSIS PROPHYLAXIS
     Dosage: 75 MG, QD
     Route: 065
     Dates: start: 20160629
  9. ARANESP [Concomitant]
     Active Substance: DARBEPOETIN ALFA
     Indication: ANAEMIA PROPHYLAXIS
     Dosage: 150 UG, QMO
     Route: 065
     Dates: start: 20160609, end: 20170706

REACTIONS (19)
  - Second primary malignancy [Not Recovered/Not Resolved]
  - Bronchitis [Recovered/Resolved]
  - Bronchitis [Recovered/Resolved]
  - Death [Fatal]
  - Procedural haemorrhage [Recovered/Resolved]
  - Endometrial adenocarcinoma [Not Recovered/Not Resolved]
  - Hypertension [Recovered/Resolved]
  - Nausea [Not Recovered/Not Resolved]
  - Urogenital fistula [Recovered/Resolved]
  - Metastases to lymph nodes [Unknown]
  - Postmenopausal haemorrhage [Recovered/Resolved]
  - Acute kidney injury [Recovered/Resolved]
  - Cataract [Recovered/Resolved]
  - Anxiety [Not Recovered/Not Resolved]
  - Abdominal pain [Not Recovered/Not Resolved]
  - Malignant peritoneal neoplasm [Not Recovered/Not Resolved]
  - Invasive ductal breast carcinoma [Not Recovered/Not Resolved]
  - Constipation [Not Recovered/Not Resolved]
  - Sleep disorder [Unknown]

NARRATIVE: CASE EVENT DATE: 20141016
